FAERS Safety Report 5895550-5 (Version None)
Quarter: 2008Q3

REPORT INFORMATION
  Report Type: 
  Country: None (occurrence: None)
  Receive Date: 20080924
  Receipt Date: 20080331
  Transmission Date: 20090109
  Serious: No
  Sender: FDA-Public Use
  Company Number: US-ASTRAZENECA-2006UW07755

PATIENT
  Age: 35 Year
  Sex: Female
  Weight: 88.5 kg

DRUGS (12)
  1. SEROQUEL [Suspect]
     Indication: BIPOLAR DISORDER
     Dosage: 25 MG TO 1000 MG
     Route: 048
     Dates: start: 20000101, end: 20080115
  2. HALDOL [Concomitant]
     Dates: start: 19980101
  3. RISPERDAL [Concomitant]
     Dosage: 1 MG TO 1000 MG
     Dates: start: 19930101, end: 19970101
  4. RISPERDAL [Concomitant]
     Dosage: 1 MG TO 1000 MG
     Dates: start: 20060101
  5. ZYPREXA [Concomitant]
  6. GEODON [Concomitant]
     Dates: start: 20080115
  7. DEPAKOTE [Concomitant]
  8. TRAZODONE HCL [Concomitant]
  9. XANAX [Concomitant]
  10. TOPAMAX [Concomitant]
  11. LEXAPRO [Concomitant]
  12. EFFEXOR [Concomitant]

REACTIONS (5)
  - BLOOD CHOLESTEROL INCREASED [None]
  - BLOOD TRIGLYCERIDES INCREASED [None]
  - CYST REMOVAL [None]
  - DIABETES MELLITUS [None]
  - OBESITY [None]
